FAERS Safety Report 16134405 (Version 1)
Quarter: 2019Q1

REPORT INFORMATION
  Report Type: Spontaneous
  Country: US (occurrence: US)
  Receive Date: 20190329
  Receipt Date: 20190329
  Transmission Date: 20190418
  Serious: No
  Sender: FDA-Public Use
  Company Number: US-AMGEN-USASP2019047021

PATIENT
  Age: 64 Year
  Sex: Female

DRUGS (2)
  1. COENZYME Q10 [Concomitant]
     Active Substance: UBIDECARENONE
     Dosage: UNK
  2. REPATHA [Suspect]
     Active Substance: EVOLOCUMAB
     Indication: LOW DENSITY LIPOPROTEIN ABNORMAL
     Dosage: 140 MILLIGRAM
     Route: 065
     Dates: start: 201810

REACTIONS (2)
  - Muscle spasms [Recovered/Resolved]
  - Weight increased [Not Recovered/Not Resolved]
